FAERS Safety Report 8267196-5 (Version None)
Quarter: 2012Q2

REPORT INFORMATION
  Report Type: 
  Country: None (occurrence: None)
  Receive Date: 20120409
  Receipt Date: 20120405
  Transmission Date: 20120825
  Serious: Yes (Disabling, Other)
  Sender: FDA-Public Use
  Company Number: US-PFIZER INC-2012086379

PATIENT
  Sex: Male
  Weight: 98.866 kg

DRUGS (5)
  1. SUTENT [Suspect]
     Indication: PROSTATE CANCER
     Dosage: 50MG, DAILY
     Dates: start: 20120101, end: 20120310
  2. XGEVA [Concomitant]
     Indication: BONE NEOPLASM MALIGNANT
     Dosage: UNK, MONTHLY
  3. SUTENT [Suspect]
     Indication: RENAL NEOPLASM
  4. LUPRON [Concomitant]
     Indication: BLOOD TESTOSTERONE ABNORMAL
     Dosage: UNK, EVERY THREE MONTHS
  5. CASODEX [Concomitant]
     Indication: PROSTATE CANCER
     Dosage: 50 MG, DAILY

REACTIONS (6)
  - DYSGEUSIA [None]
  - DRUG INTOLERANCE [None]
  - GLOSSODYNIA [None]
  - ASTHENIA [None]
  - AGEUSIA [None]
  - OROPHARYNGEAL BLISTERING [None]
